FAERS Safety Report 8835200 (Version 1)
Quarter: 2012Q4

REPORT INFORMATION
  Report Type: Report from Study
  Country: US (occurrence: US)
  Receive Date: 20121011
  Receipt Date: 20121011
  Transmission Date: 20130627
  Serious: Yes (Other)
  Sender: FDA-Public Use
  Company Number: US-ABBOTT-12P-163-0991240-00

PATIENT
  Sex: Female
  Weight: 63.56 kg

DRUGS (5)
  1. HUMIRA [Suspect]
     Indication: RHEUMATOID ARTHRITIS
     Dates: start: 2009
  2. LORAZEPAM [Concomitant]
     Indication: ANXIETY
  3. LORAZEPAM [Concomitant]
     Indication: RESTLESSNESS
  4. LORAZEPAM [Concomitant]
     Indication: DEPRESSION
  5. BENADRYL [Concomitant]
     Indication: SLEEP DISORDER THERAPY

REACTIONS (6)
  - Tooth disorder [Not Recovered/Not Resolved]
  - Oral infection [Not Recovered/Not Resolved]
  - Rheumatoid arthritis [Not Recovered/Not Resolved]
  - Pain [Not Recovered/Not Resolved]
  - Endodontic procedure [Recovered/Resolved]
  - Tooth extraction [Recovered/Resolved]
